FAERS Safety Report 6845967-7 (Version None)
Quarter: 2010Q3

REPORT INFORMATION
  Report Type: 
  Country: None (occurrence: None)
  Receive Date: 20100715
  Receipt Date: 20070830
  Transmission Date: 20110219
  Serious: No
  Sender: FDA-Public Use
  Company Number: US-PFIZER INC-2007073598

PATIENT
  Sex: Male
  Weight: 72.7 kg

DRUGS (2)
  1. CHANTIX [Suspect]
     Indication: TOBACCO USER
     Dates: start: 20070826
  2. PAXIL [Concomitant]
     Indication: DEPRESSION

REACTIONS (2)
  - FATIGUE [None]
  - SOMNOLENCE [None]
